FAERS Safety Report 10205228 (Version 1)
Quarter: 2014Q2

REPORT INFORMATION
  Report Type: Spontaneous
  Country: US (occurrence: None)
  Receive Date: 20140527
  Receipt Date: 20140527
  Transmission Date: 20141212
  Serious: Yes (Hospitalization)
  Sender: FDA-Public Use
  Company Number: None

PATIENT
  Age: 71 Year
  Sex: Female

DRUGS (5)
  1. TEMOZOLOMIDE [Suspect]
     Indication: NEOPLASM MALIGNANT
     Route: 048
     Dates: end: 20120706
  2. ALPRAZOLAM [Concomitant]
  3. LORAZEPAM [Concomitant]
  4. DEXAMETHASONE [Concomitant]
  5. RANITIDINE [Concomitant]

REACTIONS (6)
  - Hypoxia [None]
  - Pneumocystis jirovecii pneumonia [None]
  - No therapeutic response [None]
  - Lung infiltration [None]
  - Drug hypersensitivity [None]
  - Aspergillus infection [None]
